FAERS Safety Report 4951831-0 (Version None)
Quarter: 2006Q1

REPORT INFORMATION
  Report Type: 
  Country: None (occurrence: None)
  Receive Date: 20060323
  Receipt Date: 20051025
  Transmission Date: 20060701
  Serious: Yes (Hospitalization, Disabling)
  Sender: FDA-Public Use
  Company Number: US-MERCK-0510USA09238

PATIENT
  Age: 54 Year
  Sex: Female
  Weight: 74 kg

DRUGS (12)
  1. VIOXX [Suspect]
     Indication: PAIN
     Route: 048
     Dates: start: 19990729, end: 20040901
  2. VIOXX [Suspect]
     Route: 048
     Dates: start: 19990729, end: 20040901
  3. VIOXX [Suspect]
     Route: 048
     Dates: start: 19990729, end: 20040901
  4. VIOXX [Suspect]
     Indication: ARTHRITIS
     Route: 048
     Dates: start: 19990729, end: 20040901
  5. VIOXX [Suspect]
     Route: 048
     Dates: start: 19990729, end: 20040901
  6. VIOXX [Suspect]
     Route: 048
     Dates: start: 19990729, end: 20040901
  7. VERAPAMIL [Concomitant]
     Route: 048
  8. ATENOLOL [Concomitant]
     Route: 048
  9. AMITRIPTYLINE HYDROCHLORIDE [Concomitant]
     Route: 048
  10. VICODIN [Concomitant]
     Indication: ARTHRALGIA
     Route: 048
  11. DYAZIDE [Concomitant]
     Indication: SWELLING
     Route: 048
  12. PROGESTIN INJ [Concomitant]
     Indication: METRORRHAGIA
     Route: 065

REACTIONS (12)
  - ANXIETY [None]
  - ARTERIOSCLEROSIS [None]
  - BUNDLE BRANCH BLOCK [None]
  - BURSITIS [None]
  - CARDIOVASCULAR DISORDER [None]
  - CEREBROVASCULAR ACCIDENT [None]
  - DYSPNOEA [None]
  - JOINT INJURY [None]
  - MALIGNANT HYPERTENSION [None]
  - MENTAL DISORDER [None]
  - OSTEOARTHRITIS [None]
  - PULMONARY EMBOLISM [None]
